FAERS Safety Report 4374012-0 (Version None)
Quarter: 2004Q2

REPORT INFORMATION
  Report Type: 
  Country: None (occurrence: None)
  Receive Date: 20040601
  Receipt Date: 20040317
  Transmission Date: 20050107
  Serious: No
  Sender: FDA-Public Use
  Company Number: MPS1-10186

PATIENT
  Age: 4 Year
  Sex: Male
  Weight: 14.7 kg

DRUGS (10)
  1. ALDURAZYME [Suspect]
     Indication: MUCOPOLYSACCHARIDOSIS I
     Dosage: 8.7 MG QWK IV
     Route: 042
     Dates: start: 20031002
  2. SUDAFED S.A. [Concomitant]
  3. ZYRTEC [Concomitant]
  4. AFRIN SINUS [Concomitant]
  5. MULTI-VITAMIN [Concomitant]
  6. ALBUTEROL [Concomitant]
  7. PULMICORT [Concomitant]
  8. BENADRYL [Concomitant]
  9. MOTRIN [Concomitant]
  10. INTRAVENOUS GAMMAGLOBULIN [Concomitant]

REACTIONS (1)
  - CATHETER RELATED INFECTION [None]
